FAERS Safety Report 23578563 (Version 1)
Quarter: 2024Q1

REPORT INFORMATION
  Report Type: Spontaneous
  Country: ZA (occurrence: None)
  Receive Date: 20240229
  Receipt Date: 20240229
  Transmission Date: 20240409
  Serious: Yes (Hospitalization, Other)
  Sender: FDA-Public Use
  Company Number: 2024A046242

PATIENT
  Age: 24837 Day
  Sex: Female

DRUGS (4)
  1. DAPAGLIFLOZIN [Suspect]
     Active Substance: DAPAGLIFLOZIN
     Indication: Diabetes mellitus
     Route: 048
  2. AZARGA [Concomitant]
     Active Substance: BRINZOLAMIDE\TIMOLOL MALEATE
     Indication: Glaucoma
     Route: 047
  3. PRITOR [Concomitant]
     Indication: Hypertension
     Route: 048
  4. HUMIRA PRE-FILLED [Concomitant]
     Indication: Autoimmune disorder
     Route: 058

REACTIONS (1)
  - Renal neoplasm [Unknown]
